APPROVED DRUG PRODUCT: DESIPRAMINE HYDROCHLORIDE
Active Ingredient: DESIPRAMINE HYDROCHLORIDE
Strength: 75MG
Dosage Form/Route: TABLET;ORAL
Application: A208105 | Product #004 | TE Code: AB
Applicant: AMNEAL PHARMACEUTICALS CO GMBH
Approved: Mar 17, 2016 | RLD: No | RS: No | Type: RX